FAERS Safety Report 18154416 (Version 10)
Quarter: 2021Q1

REPORT INFORMATION
  Report Type: Spontaneous
  Country: CA (occurrence: CA)
  Receive Date: 20200817
  Receipt Date: 20210126
  Transmission Date: 20210419
  Serious: Yes (Death, Hospitalization, Other)
  Sender: FDA-Public Use
  Company Number: CA-CELLTRION INC.-2020CA025154

PATIENT

DRUGS (11)
  1. BENADRYL [Concomitant]
     Active Substance: DIPHENHYDRAMINE HYDROCHLORIDE
     Dosage: 50 MG
     Route: 042
  2. METHYLPREDNISOLONE. [Concomitant]
     Active Substance: METHYLPREDNISOLONE
     Indication: PREMEDICATION
     Dosage: 100 MG
     Route: 042
     Dates: start: 20200808, end: 20200808
  3. PREDNISONE. [Concomitant]
     Active Substance: PREDNISONE
     Dosage: 50 MG, TAPER
     Route: 065
     Dates: start: 20201028
  4. INFLECTRA [Suspect]
     Active Substance: INFLIXIMAB-DYYB
     Dosage: 300 MG 0, 2, 6 WEEK THEN EVERY 8 WEEKS
     Route: 042
     Dates: start: 20200909
  5. BENADRYL [Concomitant]
     Active Substance: DIPHENHYDRAMINE HYDROCHLORIDE
     Indication: PREMEDICATION
     Dosage: 25 MG
     Route: 048
  6. INFLECTRA [Suspect]
     Active Substance: INFLIXIMAB-DYYB
     Dosage: 300 MG 0, 2, 6 WEEK THEN EVERY 8 WEEKS
     Route: 042
     Dates: start: 20201128
  7. TYLENOL [Concomitant]
     Active Substance: ACETAMINOPHEN
     Dosage: 1000 MG
     Route: 065
     Dates: start: 20200808, end: 20200808
  8. INFLECTRA [Suspect]
     Active Substance: INFLIXIMAB-DYYB
     Dosage: 300 MG 0, 2, 6 WEEK THEN EVERY 8 WEEKS
     Route: 042
     Dates: start: 20200808, end: 20200808
  9. TYLENOL [Concomitant]
     Active Substance: ACETAMINOPHEN
     Indication: PREMEDICATION
     Dosage: 2 DF BEFORE HER TREATMENT
     Route: 065
     Dates: start: 20200808, end: 20200808
  10. INFLECTRA [Suspect]
     Active Substance: INFLIXIMAB-DYYB
     Dosage: 300 MG 0, 2, 6 WEEK THEN EVERY 8 WEEKS
     Route: 042
     Dates: start: 20201031
  11. INFLECTRA [Suspect]
     Active Substance: INFLIXIMAB-DYYB
     Indication: CROHN^S DISEASE
     Dosage: 300 MG 0, 2, 6 WEEK THEN EVERY 8 WEEKS
     Route: 042
     Dates: start: 20200724

REACTIONS (26)
  - Diabetes mellitus [Unknown]
  - Heart rate irregular [Unknown]
  - Condition aggravated [Recovering/Resolving]
  - Heart rate decreased [Unknown]
  - Death [Fatal]
  - Fall [Unknown]
  - Autoimmune myositis [Unknown]
  - Blood pressure fluctuation [Unknown]
  - Off label use [Unknown]
  - Intentional product use issue [Unknown]
  - Nasopharyngitis [Unknown]
  - Drug level below therapeutic [Not Recovered/Not Resolved]
  - Faecal calprotectin increased [Unknown]
  - Weight decreased [Not Recovered/Not Resolved]
  - Blood pressure increased [Unknown]
  - Off label use [Unknown]
  - Malaise [Unknown]
  - Carbohydrate antigen 19-9 increased [Unknown]
  - Limb injury [Unknown]
  - Drug specific antibody [Not Recovered/Not Resolved]
  - Asthenia [Unknown]
  - Pruritus [Recovered/Resolved]
  - Muscle atrophy [Unknown]
  - Pain [Recovered/Resolved]
  - Arthralgia [Unknown]
  - Sepsis [Unknown]

NARRATIVE: CASE EVENT DATE: 20200729
